FAERS Safety Report 5465976-2 (Version None)
Quarter: 2007Q3

REPORT INFORMATION
  Report Type: 
  Country: None (occurrence: None)
  Receive Date: 20070924
  Receipt Date: 20070913
  Transmission Date: 20080115
  Serious: No
  Sender: FDA-Public Use
  Company Number: US-BOEHRINGER INGELHEIM PHARMACEUTICALS, INC.-2007-BP-21106BP

PATIENT
  Sex: Male

DRUGS (5)
  1. MIRAPEX [Suspect]
     Indication: PARKINSON'S DISEASE
     Route: 048
     Dates: start: 20050815, end: 20070301
  2. MIRAPEX [Suspect]
     Route: 048
     Dates: start: 20070301, end: 20070914
  3. STALEVO 100 [Concomitant]
     Indication: PARKINSON'S DISEASE
  4. AMANTADINE HCL [Concomitant]
     Indication: PARKINSON'S DISEASE
  5. LISINOPRIL [Concomitant]
     Indication: HYPERTENSION

REACTIONS (1)
  - PATHOLOGICAL GAMBLING [None]
